FAERS Safety Report 10137627 (Version 1)
Quarter: 2014Q2

REPORT INFORMATION
  Report Type: Spontaneous
  Country: US (occurrence: None)
  Receive Date: 20140428
  Receipt Date: 20140428
  Transmission Date: 20141212
  Serious: Yes (Life-Threatening, Hospitalization, Disabling)
  Sender: FDA-Public Use
  Company Number: None

PATIENT
  Age: 55 Year
  Sex: Male

DRUGS (1)
  1. AMIODARONE [Suspect]
     Indication: HEART RATE IRREGULAR
     Dosage: NOT SURE, ONCE DAILY, TAKEN BY MOUTH
     Route: 048

REACTIONS (5)
  - Hypothyroidism [None]
  - Pulmonary toxicity [None]
  - Weight decreased [None]
  - Cough [None]
  - Dyspnoea [None]
